APPROVED DRUG PRODUCT: MILRINONE LACTATE
Active Ingredient: MILRINONE LACTATE
Strength: EQ 1MG BASE/ML
Dosage Form/Route: INJECTABLE;INJECTION
Application: A214380 | Product #001 | TE Code: AP
Applicant: CAPLIN STERILES LTD
Approved: Apr 16, 2021 | RLD: No | RS: No | Type: RX